FAERS Safety Report 26087315 (Version 1)
Quarter: 2025Q4

REPORT INFORMATION
  Report Type: Spontaneous
  Country: RU (occurrence: RU)
  Receive Date: 20251125
  Receipt Date: 20251125
  Transmission Date: 20260117
  Serious: Yes (Death, Other)
  Sender: AMGEN
  Company Number: RU-AMGEN-RUSSP2025228254

PATIENT

DRUGS (9)
  1. FILGRASTIM [Suspect]
     Active Substance: FILGRASTIM
     Indication: Prophylaxis
     Dosage: 5 MICROGRAM/KILOGRAM, QD (ONCE DAILY FOR }= 5 DAYS FOR UP TO 14 DAYS OR UNTIL ABSOLUTE NEUTROPHIL CO
     Route: 058
  2. LIPEGFILGRASTIM [Suspect]
     Active Substance: LIPEGFILGRASTIM
     Indication: Prophylaxis
     Dosage: 100 MICROGRAM/KILOGRAM, PER CHEMO REGIM
     Route: 058
  3. VINCRISTINE [Concomitant]
     Active Substance: VINCRISTINE
  4. DOXORUBICIN [Concomitant]
     Active Substance: DOXORUBICIN
  5. CYCLOPHOSPHAMIDE [Concomitant]
     Active Substance: CYCLOPHOSPHAMIDE
  6. IFOSFAMIDE [Concomitant]
     Active Substance: IFOSFAMIDE
  7. ETOPOSIDE [Concomitant]
     Active Substance: ETOPOSIDE
  8. ACTINOMYCIN D [Concomitant]
     Active Substance: DACTINOMYCIN
  9. MESNA [Concomitant]
     Active Substance: MESNA

REACTIONS (35)
  - Disease progression [Fatal]
  - Thrombocytopenia [Unknown]
  - Neutropenia [Unknown]
  - Febrile neutropenia [Unknown]
  - Metabolic disorder [Unknown]
  - Anaemia [Unknown]
  - Malnutrition [Unknown]
  - Lymphopenia [Unknown]
  - Leukopenia [Unknown]
  - Gastrointestinal disorder [Unknown]
  - Alanine aminotransferase increased [Unknown]
  - Leukocytosis [Unknown]
  - Monocytosis [Unknown]
  - Sarcoma [Unknown]
  - Lymphocyte count decreased [Unknown]
  - Constipation [Unknown]
  - Polyneuropathy [Unknown]
  - Neutrophil count decreased [Unknown]
  - Gamma-glutamyltransferase increased [Unknown]
  - Aspartate aminotransferase increased [Unknown]
  - Mucosal inflammation [Unknown]
  - Alanine aminotransferase increased [Unknown]
  - Diarrhoea [Unknown]
  - Pyrexia [Unknown]
  - Back pain [Unknown]
  - Vomiting [Unknown]
  - Platelet count decreased [Unknown]
  - Bronchitis [Unknown]
  - Epistaxis [Unknown]
  - Cough [Unknown]
  - Headache [Unknown]
  - Rhinitis [Unknown]
  - Stomatitis [Unknown]
  - Alopecia [Unknown]
  - Nausea [Unknown]
